FAERS Safety Report 5616565-8 (Version None)
Quarter: 2008Q1

REPORT INFORMATION
  Report Type: 
  Country: None (occurrence: None)
  Receive Date: 20080207
  Receipt Date: 20070717
  Transmission Date: 20080703
  Serious: No
  Sender: FDA-Public Use
  Company Number: A0664584A

PATIENT
  Age: 37 Year
  Sex: Female

DRUGS (4)
  1. PAXIL [Suspect]
     Dosage: 25MG PER DAY
     Route: 048
     Dates: start: 20010101
  2. UNKNOWN MEDICATION [Concomitant]
  3. CENTRUM MULTIVITAMIN [Concomitant]
  4. VITAMIN D [Concomitant]

REACTIONS (3)
  - AGGRESSION [None]
  - AGITATION [None]
  - WITHDRAWAL SYNDROME [None]
